FAERS Safety Report 8984646 (Version 3)
Quarter: 2013Q2

REPORT INFORMATION
  Report Type: Report from Study
  Country: JP (occurrence: JP)
  Receive Date: 20121226
  Receipt Date: 20130516
  Transmission Date: 20140414
  Serious: Yes (Hospitalization)
  Sender: FDA-Public Use
  Company Number: JP-JNJFOC-20121211188

PATIENT
  Age: 62 Year
  Sex: Male
  Weight: 58 kg

DRUGS (8)
  1. TRAMCET [Suspect]
     Indication: PAIN
     Dosage: 1 PER DAY
     Route: 048
     Dates: start: 20120928, end: 20121012
  2. LYRICA [Concomitant]
     Indication: PAIN
     Dosage: 1 PER DAY
     Route: 048
     Dates: end: 20121012
  3. PRIMPERAN [Concomitant]
     Indication: PROPHYLAXIS
     Dosage: 1 PER DAY
     Route: 048
     Dates: start: 20120928, end: 20121012
  4. PURSENNID [Concomitant]
     Indication: PROPHYLAXIS
     Dosage: 1 PER DAY
     Route: 048
     Dates: start: 20120928, end: 20121012
  5. NEUROTROPIN [Concomitant]
     Indication: PAIN
     Dosage: 1 PER DAY, 16 LU
     Route: 048
     Dates: end: 20121012
  6. XYLOCAINE [Concomitant]
     Indication: PAIN
     Route: 061
     Dates: start: 20120913, end: 20121012
  7. CALBLOCK [Concomitant]
     Indication: HYPERTENSION
     Dosage: 1 PER 1 DAY
     Route: 048
  8. PREDNISOLONE [Concomitant]
     Indication: ANTI-NEUTROPHIL CYTOPLASMIC ANTIBODY POSITIVE VASCULITIS
     Dosage: 1 PER 1 DAY
     Route: 048

REACTIONS (3)
  - Acute respiratory failure [Recovered/Resolved]
  - Renal failure acute [Recovering/Resolving]
  - Pulmonary oedema [Unknown]
